FAERS Safety Report 23135100 (Version 1)
Quarter: 2023Q4

REPORT INFORMATION
  Report Type: Spontaneous
  Country: US (occurrence: None)
  Receive Date: 20231101
  Receipt Date: 20231101
  Transmission Date: 20240109
  Serious: Yes (Death)
  Sender: FDA-Public Use
  Company Number: None

PATIENT
  Age: 84 Year
  Sex: Male
  Weight: 81 kg

DRUGS (4)
  1. ZOMETA [Suspect]
     Active Substance: ZOLEDRONIC ACID
     Indication: Metastases to bone
     Dosage: OTHER FREQUENCY : UNCLEAR;?
     Route: 042
     Dates: start: 20231010, end: 20231010
  2. XGEVA [Concomitant]
     Active Substance: DENOSUMAB
  3. VITAMIN D [Concomitant]
     Active Substance: VITAMIN D NOS
  4. CALCIUM [Concomitant]
     Active Substance: CALCIUM

REACTIONS (9)
  - Fatigue [None]
  - Mobility decreased [None]
  - Asthenia [None]
  - Bone pain [None]
  - Vomiting [None]
  - Expired product administered [None]
  - Nausea [None]
  - Hypophagia [None]
  - Fluid intake reduced [None]

NARRATIVE: CASE EVENT DATE: 20231012
